FAERS Safety Report 8577714-5 (Version None)
Quarter: 2012Q3

REPORT INFORMATION
  Report Type: 
  Country: None (occurrence: None)
  Receive Date: 20120808
  Receipt Date: 20120806
  Transmission Date: 20120928
  Serious: Yes (Other)
  Sender: FDA-Public Use
  Company Number: FR-AMGEN-FRASP2012048868

PATIENT
  Age: 67 Year
  Sex: Female

DRUGS (5)
  1. NEULASTA [Suspect]
     Indication: CHEMOTHERAPY
     Dosage: UNK
     Dates: start: 20120627
  2. HALAVEN [Suspect]
     Dosage: 1.58 MG, UNK
     Route: 042
     Dates: start: 20120619
  3. ONDANSETRON [Suspect]
     Dosage: 8 MG, UNK
     Dates: start: 20120626
  4. SOLU-MEDROL [Suspect]
     Dosage: 20 MG, UNK
     Dates: start: 20120626
  5. ZANTAC [Suspect]
     Dosage: 50 MG, UNK
     Dates: start: 20120626

REACTIONS (3)
  - NAUSEA [None]
  - FATIGUE [None]
  - HERPES ZOSTER [None]
